FAERS Safety Report 7314854-2 (Version None)
Quarter: 2011Q1

REPORT INFORMATION
  Report Type: 
  Country: None (occurrence: None)
  Receive Date: 20110225
  Receipt Date: 20100107
  Transmission Date: 20110831
  Serious: No
  Sender: FDA-Public Use
  Company Number: US-MYLANLABS-2010S1000302

PATIENT
  Age: 20 Year
  Sex: Female
  Weight: 63.5 kg

DRUGS (3)
  1. AMNESTEEM [Suspect]
     Route: 048
     Dates: start: 20091001, end: 20100105
  2. AMNESTEEM [Suspect]
     Indication: ACNE
     Route: 048
     Dates: start: 20091001, end: 20100105
  3. ORTHO TRI-CYCLEN [Concomitant]
     Indication: CONTRACEPTION
     Route: 048
     Dates: start: 20090901

REACTIONS (2)
  - FLATULENCE [None]
  - ABDOMINAL DISCOMFORT [None]
